FAERS Safety Report 5951965-8 (Version None)
Quarter: 2008Q4

REPORT INFORMATION
  Report Type: 
  Country: None (occurrence: None)
  Receive Date: 20081113
  Receipt Date: 20071005
  Transmission Date: 20090506
  Serious: No
  Sender: FDA-Public Use
  Company Number: A0686348A

PATIENT
  Age: 82 Year
  Sex: Female

DRUGS (9)
  1. COREG [Suspect]
     Dosage: 3.125MG TWICE PER DAY
     Route: 048
     Dates: start: 20040101
  2. SEREVENT [Suspect]
     Indication: CHRONIC OBSTRUCTIVE PULMONARY DISEASE
     Dosage: 1PUFF PER DAY
     Route: 055
  3. SEREVENT [Concomitant]
  4. DIGITEK [Concomitant]
  5. SYNTHROID [Concomitant]
  6. STARLIX [Concomitant]
  7. COUMADIN [Concomitant]
  8. PULMICORT-100 [Concomitant]
  9. XOPENEX [Concomitant]

REACTIONS (5)
  - ABDOMINAL DISCOMFORT [None]
  - DIZZINESS [None]
  - NAUSEA [None]
  - URTICARIA [None]
  - WEIGHT INCREASED [None]
